FAERS Safety Report 8866110 (Version 1)
Quarter: 2012Q4

REPORT INFORMATION
  Report Type: 
  Country: FR (occurrence: FR)
  Receive Date: 20121025
  Receipt Date: 20121025
  Transmission Date: 20130627
  Serious: Yes (Hospitalization)
  Sender: FDA-Public Use
  Company Number: FR-ASTRAZENECA-2012SE80149

PATIENT
  Age: 54 Year
  Sex: Female
  Weight: 84 kg

DRUGS (7)
  1. TENORETIC [Suspect]
     Indication: HYPERTENSION
     Dosage: Tenormine 50mg + Chlortalidone 12.5 mg, daily
     Route: 048
  2. IBUPROFENE [Suspect]
     Route: 048
     Dates: end: 20120908
  3. DOLIPRANE [Suspect]
     Route: 048
  4. DOXYLAMINE [Suspect]
     Route: 048
     Dates: start: 201207, end: 20120908
  5. BETAINE [Suspect]
     Route: 048
     Dates: end: 20120908
  6. CODEINE [Suspect]
     Route: 048
     Dates: end: 20120908
  7. OMEGA 3 [Concomitant]
     Route: 048

REACTIONS (3)
  - Coombs positive haemolytic anaemia [Not Recovered/Not Resolved]
  - Hepatic steatosis [Unknown]
  - Hypokalaemia [Unknown]
